FAERS Safety Report 21409092 (Version 4)
Quarter: 2025Q4

REPORT INFORMATION
  Report Type: Spontaneous
  Country: US (occurrence: US)
  Receive Date: 20221004
  Receipt Date: 20251026
  Transmission Date: 20260117
  Serious: No
  Sender: SANOFI AVENTIS
  Company Number: US-SANOFI-01299815

PATIENT
  Age: 70 Year
  Sex: Male

DRUGS (12)
  1. DUPIXENT [Suspect]
     Active Substance: DUPILUMAB
     Indication: Nasal polyps
     Dosage: 300 MG, QOW
     Route: 058
  2. DUPIXENT [Suspect]
     Active Substance: DUPILUMAB
     Dosage: 300 MG, Q4W
     Route: 058
     Dates: start: 20241107
  3. VITAMIN D3 [Concomitant]
     Active Substance: CHOLECALCIFEROL
     Dosage: 1 DF, QD
     Route: 048
  4. ALLOPURINOL [Concomitant]
     Active Substance: ALLOPURINOL
     Dosage: UNK UNK, QD
  5. PROVENTIL HFA [Concomitant]
     Active Substance: ALBUTEROL SULFATE
     Dosage: TAKE 2 EVERY FOUR TO SIX HOURS AS NEEDED
  6. BUDESONIDE [Concomitant]
     Active Substance: BUDESONIDE
     Dosage: 0.5 VIAL USING NEBULIZER TWICE A DAY WITH EXACERBATIONS
  7. BREZTRI [Concomitant]
     Active Substance: BUDESONIDE\FORMOTEROL\GLYCOPYRROLATE
     Dosage: 2 PUFFS TWICE A DAY
  8. CETIRIZINE [Concomitant]
     Active Substance: CETIRIZINE HYDROCHLORIDE
     Dosage: 1 DF, QD
  9. FLUTICASONE PROPIONATE [Concomitant]
     Active Substance: FLUTICASONE PROPIONATE
     Dosage: USE NASAL SALINE AND THEN ONE TO 2 SPRAYS EACH NOSTRIL ONCE A DAY
  10. PREDNISONE [Concomitant]
     Active Substance: PREDNISONE
     Dosage: 1 DF, BID
  11. EPIPEN [Concomitant]
     Active Substance: EPINEPHRINE
     Dosage: INJECT 1 PEN INJECTOR INTRAMUSCULARLY AS NEEDED FOR ANAPHYLAXIS
     Route: 030
  12. ALBUTEROL SULFATE [Concomitant]
     Active Substance: ALBUTEROL SULFATE
     Dosage: 1 VIAL EVERY FOUR TO SIX HOURS AS NEEDED

REACTIONS (4)
  - Eyelid margin crusting [Unknown]
  - Ocular hyperaemia [Unknown]
  - Rash [Unknown]
  - Off label use [Unknown]

NARRATIVE: CASE EVENT DATE: 20241107
